FAERS Safety Report 8406224-0 (Version None)
Quarter: 2012Q2

REPORT INFORMATION
  Report Type: 
  Country: None (occurrence: None)
  Receive Date: 20120529
  Receipt Date: 20060706
  Transmission Date: 20120825
  Serious: Yes (Life-Threatening, Hospitalization)
  Sender: FDA-Public Use
  Company Number: 15691-USA-06-1048

PATIENT
  Age: 69 Year
  Sex: Male

DRUGS (11)
  1. TOLVAPTAN (TOLVAPTAN(V4.1)) 30MG [Suspect]
     Indication: CARDIAC FAILURE CONGESTIVE
     Dosage: 30 MG, QD, ORAL
     Route: 048
     Dates: start: 20060126
  2. FUROSEMIDE [Concomitant]
  3. CARVEDILOL [Concomitant]
  4. BIO-INSULIN 30/70 [Concomitant]
  5. RAMIPRIL [Concomitant]
  6. METOLAZONE [Concomitant]
  7. ACENOCOUMAROL (ACENOCOUMAROL) [Concomitant]
  8. SIMVASTATIN [Concomitant]
  9. LANSOPRAZOLE [Concomitant]
  10. INSULIN R (INSULIN) [Concomitant]
  11. POTASSIUM CANRENOATE (POTASSIUM CANRENOATE) [Concomitant]

REACTIONS (4)
  - RENAL FAILURE ACUTE [None]
  - CARDIAC FAILURE [None]
  - HYPOTENSION [None]
  - SYNCOPE [None]
